FAERS Safety Report 7853105-7 (Version None)
Quarter: 2011Q4

REPORT INFORMATION
  Report Type: 
  Country: None (occurrence: None)
  Receive Date: 20111026
  Receipt Date: 20111019
  Transmission Date: 20120403
  Serious: Yes (Hospitalization, Other)
  Sender: FDA-Public Use
  Company Number: FR-JNJFOC-20111005911

PATIENT
  Sex: Male

DRUGS (5)
  1. LYRICA [Suspect]
     Indication: PRODUCT USED FOR UNKNOWN INDICATION
     Route: 048
  2. IMODIUM [Suspect]
     Indication: PRODUCT USED FOR UNKNOWN INDICATION
     Route: 065
  3. ATARAX [Suspect]
     Indication: PRODUCT USED FOR UNKNOWN INDICATION
     Route: 048
  4. DEXERYL [Concomitant]
     Indication: PRODUCT USED FOR UNKNOWN INDICATION
     Route: 065
  5. VALGANCICLOVIR [Suspect]
     Indication: PRODUCT USED FOR UNKNOWN INDICATION
     Dosage: IN THE EVENING
     Route: 048

REACTIONS (6)
  - WHITE BLOOD CELL COUNT DECREASED [None]
  - NEUTROPHIL COUNT DECREASED [None]
  - TOXIC SKIN ERUPTION [None]
  - PLATELET COUNT DECREASED [None]
  - PYREXIA [None]
  - HAEMOGLOBIN DECREASED [None]
